FAERS Safety Report 12543312 (Version 1)
Quarter: 2016Q3

REPORT INFORMATION
  Report Type: Report from Study
  Country: JP (occurrence: JP)
  Receive Date: 20160711
  Receipt Date: 20160711
  Transmission Date: 20161109
  Serious: Yes (Other)
  Sender: FDA-Public Use
  Company Number: JP-SHIRE-JP201608067

PATIENT
  Age: 80 Year
  Sex: Male
  Weight: 57.3 kg

DRUGS (6)
  1. 422 (ANAGRELIDE) [Suspect]
     Active Substance: ANAGRELIDE
     Indication: ESSENTIAL THROMBOCYTHAEMIA
     Dosage: 1.5 MG/DAY
     Route: 048
     Dates: start: 20150502, end: 20150619
  2. MUCOSTA [Concomitant]
     Active Substance: REBAMIPIDE
     Indication: PROPHYLAXIS
     Dosage: UNKNOWN
     Route: 065
     Dates: start: 20150515, end: 20150618
  3. 422 (ANAGRELIDE) [Suspect]
     Active Substance: ANAGRELIDE
     Dosage: 0.5 MG/DAY
     Route: 048
     Dates: start: 20150417, end: 20150501
  4. HYDROXYUREA. [Concomitant]
     Active Substance: HYDROXYUREA
     Indication: ESSENTIAL THROMBOCYTHAEMIA
     Dosage: UNKNOWN
     Route: 065
     Dates: end: 20150529
  5. 422 (ANAGRELIDE) [Suspect]
     Active Substance: ANAGRELIDE
     Dosage: 3 MG/DAY
     Route: 048
     Dates: start: 20150620, end: 20150626
  6. HYDROXYUREA. [Concomitant]
     Active Substance: HYDROXYUREA
     Dosage: UNKNOWN
     Route: 065
     Dates: start: 20150619

REACTIONS (5)
  - Headache [Recovered/Resolved]
  - Oedema [Recovered/Resolved]
  - Diarrhoea [Recovered/Resolved]
  - Malaise [Recovered/Resolved]
  - Hyperkalaemia [Recovering/Resolving]

NARRATIVE: CASE EVENT DATE: 20150515
